FAERS Safety Report 8114922-1 (Version None)
Quarter: 2012Q1

REPORT INFORMATION
  Report Type: 
  Country: None (occurrence: None)
  Receive Date: 20120206
  Receipt Date: 20120203
  Transmission Date: 20120608
  Serious: No
  Sender: FDA-Public Use
  Company Number: US-PFIZER INC-2012030919

PATIENT
  Sex: Male
  Weight: 117.9 kg

DRUGS (9)
  1. CHANTIX [Suspect]
     Indication: SMOKING CESSATION THERAPY
     Dosage: UNK
     Route: 048
     Dates: start: 20110901
  2. CHANTIX [Suspect]
     Dosage: 1 MG, 2X/DAY
     Route: 048
  3. METFORMIN [Concomitant]
     Indication: DIABETES MELLITUS
     Dosage: TWO 500 MG TABLETS IN THE MORNING AND ONE 500 MG TABLET IN THE EVENING
     Route: 048
     Dates: start: 20110522
  4. LISINOPRIL [Concomitant]
     Indication: HYPERTENSION
     Dosage: 10 MG, DAILY
  5. VITAMIN D2 [Concomitant]
     Indication: HYPOVITAMINOSIS
     Dosage: 1.25 MG, WEEKLY
     Route: 048
  6. GLYBURIDE [Concomitant]
     Indication: DIABETES MELLITUS
     Dosage: 5 MG, 2X/DAY
  7. FUROSEMIDE [Concomitant]
     Indication: FLUID RETENTION
     Dosage: UNK, DAILY (ONE AND A HALF TABLET OF 40 MG DAILY)
     Route: 048
  8. DEXILANT [Concomitant]
     Indication: GASTROOESOPHAGEAL REFLUX DISEASE
     Dosage: 60 MG, DAILY
     Route: 048
  9. TRICOR [Concomitant]
     Indication: BLOOD TRIGLYCERIDES ABNORMAL
     Dosage: 145 MG, DAILY
     Route: 048
     Dates: start: 20110522

REACTIONS (3)
  - DRUG INEFFECTIVE [None]
  - ABNORMAL DREAMS [None]
  - GLYCOSYLATED HAEMOGLOBIN INCREASED [None]
